FAERS Safety Report 6791334-4 (Version None)
Quarter: 2010Q2

REPORT INFORMATION
  Report Type: 
  Country: None (occurrence: None)
  Receive Date: 20100624
  Receipt Date: 20090914
  Transmission Date: 20101027
  Serious: No
  Sender: FDA-Public Use
  Company Number: US-BAUSCH-2009BL004636

PATIENT
  Sex: Male

DRUGS (1)
  1. OFLOXACIN OPHTHALMIC SOLUTION 0.3% [Suspect]
     Indication: DRUG USE FOR UNKNOWN INDICATION
     Route: 047

REACTIONS (1)
  - TENDON PAIN [None]
